FAERS Safety Report 14235787 (Version 2)
Quarter: 2018Q1

REPORT INFORMATION
  Report Type: Report from Study
  Country: JP (occurrence: JP)
  Receive Date: 20171129
  Receipt Date: 20180210
  Transmission Date: 20180508
  Serious: Yes (Hospitalization)
  Sender: FDA-Public Use
  Company Number: JP-AMGEN-JPNCT2017177349

PATIENT
  Age: 53 Year
  Sex: Female
  Weight: 60 kg

DRUGS (34)
  1. ROMIPLOSTIM [Suspect]
     Active Substance: ROMIPLOSTIM
     Indication: IMMUNE THROMBOCYTOPENIC PURPURA
     Dosage: UNK
     Route: 058
     Dates: start: 2011
  2. PREDONINE [Concomitant]
     Active Substance: PREDNISOLONE
     Indication: IMMUNE THROMBOCYTOPENIC PURPURA
     Dosage: 5 MG, UNK
     Route: 048
     Dates: start: 20160127
  3. BELSOMRA [Concomitant]
     Active Substance: SUVOREXANT
     Indication: INSOMNIA
     Dosage: UNK
     Route: 048
  4. LANSOPRAZOLE. [Concomitant]
     Active Substance: LANSOPRAZOLE
     Indication: PROPHYLAXIS
     Dosage: UNK
     Route: 048
  5. FLUCONAZOLE. [Concomitant]
     Active Substance: FLUCONAZOLE
     Indication: PROPHYLAXIS
     Dosage: UNK
     Route: 048
  6. DAIPHEN [Concomitant]
     Active Substance: SULFAMETHOXAZOLE\TRIMETHOPRIM
     Indication: PROPHYLAXIS
     Dosage: UNK
     Route: 048
  7. ZOPICLONE [Concomitant]
     Active Substance: ZOPICLONE
     Indication: INSOMNIA
     Dosage: UNK
     Route: 048
  8. MYSLEE [Concomitant]
     Active Substance: ZOLPIDEM TARTRATE
     Indication: INSOMNIA
     Dosage: UNK
     Route: 048
  9. CELECOX [Concomitant]
     Active Substance: CELECOXIB
     Indication: BACK PAIN
     Dosage: UNK
     Route: 048
  10. SENNOSIDE [Concomitant]
     Active Substance: SENNOSIDES
     Indication: CONSTIPATION
     Dosage: UNK
     Route: 048
  11. KERATINAMIN [Concomitant]
     Active Substance: UREA
     Indication: ECZEMA ASTEATOTIC
     Dosage: UNK
     Route: 061
  12. ROMIPLOSTIM [Suspect]
     Active Substance: ROMIPLOSTIM
     Dosage: 2 MUG/KG, QWK
     Route: 058
     Dates: start: 20160323, end: 20161017
  13. ROMIPLOSTIM [Suspect]
     Active Substance: ROMIPLOSTIM
     Dosage: 3 MUG/KG, QWK
     Route: 058
     Dates: start: 20161024, end: 20161031
  14. ADALAT [Concomitant]
     Active Substance: NIFEDIPINE
     Indication: HYPERTENSION
     Dosage: UNK
     Route: 048
  15. LENDORMIN [Concomitant]
     Active Substance: BROTIZOLAM
     Indication: INSOMNIA
     Dosage: UNK
     Route: 048
  16. MOHRUS [Concomitant]
     Active Substance: KETOPROFEN
     Indication: BACK PAIN
     Dosage: UNK
     Route: 061
  17. MAGMITT [Concomitant]
     Active Substance: MAGNESIUM OXIDE
     Indication: CONSTIPATION
     Dosage: UNK
     Route: 048
  18. WYPAX [Concomitant]
     Active Substance: LORAZEPAM
     Indication: INSOMNIA
     Dosage: UNK
     Route: 048
  19. POSTERISAN [Concomitant]
     Active Substance: LIDOCAINE
     Indication: HAEMORRHOIDS
     Dosage: UNK
     Route: 061
  20. ROMIPLOSTIM [Suspect]
     Active Substance: ROMIPLOSTIM
     Dosage: 2 MUG/KG, QWK
     Route: 058
     Dates: start: 20161107
  21. CYMBALTA [Concomitant]
     Active Substance: DULOXETINE HYDROCHLORIDE
     Indication: DEPRESSION
     Dosage: UNK
     Route: 048
  22. EURODIN [Concomitant]
     Indication: INSOMNIA
     Dosage: UNK
     Route: 048
  23. E KEPPRA [Concomitant]
     Active Substance: LEVETIRACETAM
     Indication: EPILEPSY
     Dosage: UNK
     Route: 048
  24. ROMIPLOSTIM [Suspect]
     Active Substance: ROMIPLOSTIM
     Dosage: 1 MUG/KG, QWK
     Route: 058
     Dates: start: 20160210, end: 20160316
  25. REVOLADE [Concomitant]
     Active Substance: ELTROMBOPAG
     Indication: IMMUNE THROMBOCYTOPENIC PURPURA
     Dosage: 25 MG, UNK
     Route: 048
     Dates: start: 20160127, end: 20160209
  26. PLETAAL [Concomitant]
     Active Substance: CILOSTAZOL
     Indication: CEREBRAL INFARCTION
     Dosage: UNK
     Route: 048
  27. ALLELOCK [Concomitant]
     Active Substance: OLOPATADINE HYDROCHLORIDE
     Indication: RHINITIS ALLERGIC
     Dosage: UNK
     Route: 048
  28. SKYRON [Concomitant]
     Indication: RHINITIS ALLERGIC
     Dosage: UNK
     Route: 045
  29. ZOLPIDEM TARTRATE. [Concomitant]
     Active Substance: ZOLPIDEM TARTRATE
     Indication: INSOMNIA
     Dosage: UNK
     Route: 048
  30. CALONAL [Concomitant]
     Active Substance: ACETAMINOPHEN
     Indication: TOOTHACHE
     Dosage: UNK
     Route: 048
  31. MAINTATE [Concomitant]
     Active Substance: BISOPROLOL FUMARATE
     Indication: HYPERTENSION
     Dosage: UNK
     Route: 048
  32. MYONAL [Concomitant]
     Active Substance: EPERISONE HYDROCHLORIDE
     Indication: PARALYSIS
     Dosage: UNK
     Route: 048
  33. BIO-THREE [Concomitant]
     Active Substance: HERBALS
     Indication: CONSTIPATION
     Dosage: UNK
     Route: 048
  34. SELTOUCH [Concomitant]
     Active Substance: FELBINAC
     Indication: BACK PAIN
     Dosage: UNK
     Route: 061

REACTIONS (4)
  - Epilepsy [Recovering/Resolving]
  - Toothache [Unknown]
  - Haemorrhoids [Unknown]
  - Insomnia [Unknown]

NARRATIVE: CASE EVENT DATE: 20160905
